FAERS Safety Report 13903102 (Version 2)
Quarter: 2018Q1

REPORT INFORMATION
  Report Type: Spontaneous
  Country: SI (occurrence: SI)
  Receive Date: 20170824
  Receipt Date: 20180130
  Transmission Date: 20180508
  Serious: Yes (Other)
  Sender: FDA-Public Use
  Company Number: SI-NAPPMUNDI-GBR-2017-0048099

PATIENT
  Age: 64 Year
  Sex: Male

DRUGS (15)
  1. CRESTOR [Concomitant]
     Active Substance: ROSUVASTATIN CALCIUM
     Indication: HYPERLIPIDAEMIA
     Dosage: 10 MG, DAILY (EVENING)
     Route: 048
  2. LEKADOL [Concomitant]
     Active Substance: ACETAMINOPHEN
     Indication: BACK PAIN
     Dosage: 2 TABLET (500 MG STRENGTH), TID
     Route: 048
     Dates: start: 20170723, end: 20170803
  3. ULTOP                              /00661201/ [Concomitant]
     Dosage: 20 MG, DAILY
     Route: 048
  4. PERINDOPRIL [Concomitant]
     Active Substance: PERINDOPRIL
     Indication: HYPERTENSION
     Dosage: 1 TABLET (4 MG/ 5 MG SRTENGTH), BID
     Route: 048
  5. NEODOLPASSE [Concomitant]
     Indication: BACK PAIN
     Dosage: 1 AMPULE, PRN
     Route: 030
     Dates: start: 20170723, end: 20170803
  6. AMLODIPINE [Concomitant]
     Active Substance: AMLODIPINE BESYLATE
     Indication: HYPERTENSION
     Dosage: 1 TABLET (4 MG / 5 MG STRENGTH), BID
     Route: 048
  7. LASIX [Concomitant]
     Active Substance: FUROSEMIDE
     Dosage: 40 MG, DAILY
     Route: 048
  8. FRAXIPARINE                        /01437701/ [Concomitant]
     Active Substance: NADROPARIN CALCIUM
     Indication: ATRIAL FIBRILLATION
     Dosage: 9500 IU/ML/12 HOURS
     Route: 058
     Dates: start: 20170730, end: 20170802
  9. SEVREDOL [Suspect]
     Active Substance: MORPHINE
     Indication: BACK PAIN
     Dosage: 10 MG, BID
     Route: 048
     Dates: start: 20170724, end: 20170730
  10. LYRICA [Suspect]
     Active Substance: PREGABALIN
     Indication: NEURALGIA
     Dosage: 25 MG, BID
     Route: 048
     Dates: start: 20170727, end: 20170730
  11. LANITOP [Concomitant]
     Active Substance: METILDIGOXIN
     Indication: ATRIAL FIBRILLATION
     Dosage: 0.1 MG, DAILY
     Route: 048
  12. SINTROM [Concomitant]
     Active Substance: ACENOCOUMAROL
     Indication: ATRIAL FIBRILLATION
     Route: 048
  13. AMOKSIKLAV                         /00852501/ [Concomitant]
     Indication: SKIN ULCER
     Dosage: 1 DF (875/125 MG STRENGTH), Q12H
     Route: 048
     Dates: start: 20170723, end: 20170729
  14. CORYOL [Concomitant]
     Active Substance: CARVEDILOL
     Indication: ATRIAL FIBRILLATION
     Dosage: 25 MG, BID
     Route: 048
  15. ANALGIN                            /06276703/ [Concomitant]
     Indication: BACK PAIN
     Dosage: 500 MG, BID
     Route: 048
     Dates: start: 20170723, end: 20170803

REACTIONS (3)
  - Paranoia [Recovered/Resolved]
  - Disorientation [Recovered/Resolved]
  - Hallucination, visual [Recovered/Resolved]

NARRATIVE: CASE EVENT DATE: 20170729
